FAERS Safety Report 8111589-3 (Version None)
Quarter: 2012Q1

REPORT INFORMATION
  Report Type: 
  Country: None (occurrence: None)
  Receive Date: 20120202
  Receipt Date: 20120202
  Transmission Date: 20120608
  Serious: Yes (Hospitalization)
  Sender: FDA-Public Use
  Company Number: None

PATIENT
  Age: 82 Year
  Sex: Male

DRUGS (1)
  1. AMIODARONE HCL [Suspect]
     Dosage: 200MG BID 047 SINCE 4/2010
     Route: 048
     Dates: start: 20100401

REACTIONS (2)
  - LUNG INFILTRATION [None]
  - PULMONARY TOXICITY [None]
